FAERS Safety Report 11062409 (Version 1)
Quarter: 2015Q2

REPORT INFORMATION
  Report Type: Report from Study
  Country: JP (occurrence: JP)
  Receive Date: 20150424
  Receipt Date: 20150424
  Transmission Date: 20150821
  Serious: Yes (Hospitalization)
  Sender: FDA-Public Use
  Company Number: JP-009507513-1305JPN005944

PATIENT
  Age: 1 Month
  Sex: Male
  Weight: 2 kg

DRUGS (10)
  1. CALCIUM PHOSPHATE, DIBASIC [Concomitant]
     Indication: OSTEOPENIA
     Dosage: 0.2 G, QD (DIVIDED DOSE FREQUENCY UNKNOWN)
     Route: 048
     Dates: start: 20100901, end: 20101029
  2. DIAZOXIDE [Suspect]
     Active Substance: DIAZOXIDE
     Dosage: 5 MG, BID
     Route: 048
     Dates: start: 20101109, end: 20101124
  3. INCREMIN [Concomitant]
     Active Substance: FERRIC PYROPHOSPHATE
     Indication: BLOOD IRON DECREASED
     Dosage: 0.7 ML, QD (DIVIDED DOSE FREQUENCY UNKNOWN)
     Route: 048
     Dates: start: 20100908, end: 20110301
  4. DIAZOXIDE [Suspect]
     Active Substance: DIAZOXIDE
     Dosage: 3.125 MG, BID
     Route: 048
     Dates: start: 20101125, end: 20101208
  5. DIAZOXIDE [Suspect]
     Active Substance: DIAZOXIDE
     Indication: HYPERINSULINAEMIA
     Dosage: 5 MG, BID
     Route: 048
     Dates: start: 20100920, end: 20101002
  6. DIAZOXIDE [Suspect]
     Active Substance: DIAZOXIDE
     Dosage: 1.785 MG, BID
     Route: 048
     Dates: start: 20101209, end: 20101222
  7. DIAZOXIDE [Suspect]
     Active Substance: DIAZOXIDE
     Indication: HYPOGLYCAEMIA
     Dosage: 6.25 MG, BID
     Route: 048
     Dates: start: 20101003, end: 20101108
  8. SODIUM CHLORIDE. [Concomitant]
     Active Substance: SODIUM CHLORIDE
     Indication: HYPONATRAEMIA
     Dosage: 0.1 G, QD (DIVIDED DOSE FREQUENCY UNKNOWN)
     Route: 048
     Dates: start: 20100829, end: 20100926
  9. DIAPP [Concomitant]
     Active Substance: DIAZEPAM
     Indication: CONVULSION PROPHYLAXIS
     Dosage: 4 MG, QD (DIVIDED DOSE FREQUENCY UNKNOWN)
     Route: 054
  10. EPOETIN ALFA [Concomitant]
     Active Substance: ERYTHROPOIETIN
     Indication: ANAEMIA NEONATAL
     Dosage: 0.13 ML/KG DAILY DOSE UNKNOWN
     Route: 058
     Dates: start: 20100907, end: 20101022

REACTIONS (20)
  - Seizure [Recovered/Resolved]
  - Oral candidiasis [Recovered/Resolved]
  - Foot deformity [Recovered/Resolved]
  - Upper respiratory tract inflammation [Recovered/Resolved]
  - Bronchiolitis [Recovered/Resolved]
  - Otitis media acute [Recovered/Resolved]
  - Dermatitis contact [Recovered/Resolved]
  - Adenoviral conjunctivitis [Recovered/Resolved]
  - Febrile convulsion [Recovered/Resolved]
  - Osteopenia [Recovering/Resolving]
  - Hypertrichosis [Recovering/Resolving]
  - Oedema [Recovered/Resolved]
  - Bronchitis [Recovered/Resolved]
  - Upper respiratory tract inflammation [Recovered/Resolved]
  - Upper respiratory tract inflammation [Recovered/Resolved]
  - Fungal skin infection [Recovered/Resolved]
  - Upper respiratory tract inflammation [Recovered/Resolved]
  - Asthma [Recovered/Resolved]
  - Bronchitis [Recovered/Resolved]
  - Viral tonsillitis [Recovered/Resolved]

NARRATIVE: CASE EVENT DATE: 20100925
